FAERS Safety Report 13734081 (Version 1)
Quarter: 2017Q3

REPORT INFORMATION
  Report Type: Spontaneous
  Country: CL (occurrence: CL)
  Receive Date: 20170708
  Receipt Date: 20170708
  Transmission Date: 20171127
  Serious: Yes (Other)
  Sender: FDA-Public Use
  Company Number: CL-009507513-1706CHL009769

PATIENT
  Sex: Female

DRUGS (1)
  1. IMPLANON [Suspect]
     Active Substance: ETONOGESTREL
     Indication: CONTRACEPTION
     Dosage: UNK
     Route: 059
     Dates: start: 20170615

REACTIONS (4)
  - Product use issue [Unknown]
  - Uterine pain [Unknown]
  - Pelvic inflammatory disease [Unknown]
  - Pelvic pain [Unknown]

NARRATIVE: CASE EVENT DATE: 201706
